FAERS Safety Report 20298695 (Version 5)
Quarter: 2022Q4

REPORT INFORMATION
  Report Type: Report from Study
  Country: CA (occurrence: CA)
  Receive Date: 20220105
  Receipt Date: 20221111
  Transmission Date: 20230113
  Serious: Yes (Other)
  Sender: FDA-Public Use
  Company Number: CA-BAUSCH-BL-2021-042933

PATIENT
  Age: 43 Year
  Sex: Male

DRUGS (3)
  1. SILIQ [Suspect]
     Active Substance: BRODALUMAB
     Indication: Psoriasis
     Dosage: 210MG/1.5ML INDUCTION WEEKLY (0,1)
     Route: 058
     Dates: start: 20211213, end: 202112
  2. SILIQ [Suspect]
     Active Substance: BRODALUMAB
     Dosage: 210MG/1.5ML WEEK 2 (RESUMED)
     Route: 058
     Dates: start: 20220204
  3. SILIQ [Suspect]
     Active Substance: BRODALUMAB
     Dosage: 210MG/1.5ML EVERY 2 WEEKS
     Route: 058
     Dates: start: 2022, end: 2022

REACTIONS (8)
  - Pelvic pain [Unknown]
  - Walking aid user [Unknown]
  - Pain in extremity [Unknown]
  - Psoriasis [Unknown]
  - COVID-19 [Unknown]
  - Therapy cessation [Unknown]
  - Product dose omission issue [Unknown]
  - Product distribution issue [Unknown]

NARRATIVE: CASE EVENT DATE: 20211201
